FAERS Safety Report 8365591-7 (Version None)
Quarter: 2012Q2

REPORT INFORMATION
  Report Type: 
  Country: None (occurrence: None)
  Receive Date: 20120516
  Receipt Date: 20120515
  Transmission Date: 20120825
  Serious: Yes (Disabling)
  Sender: FDA-Public Use
  Company Number: US-MERCK-1202USA03536

PATIENT
  Age: 65 Year
  Sex: Female
  Weight: 91 kg

DRUGS (7)
  1. ZOCOR [Suspect]
     Indication: BLOOD CHOLESTEROL INCREASED
     Route: 048
     Dates: end: 20111001
  2. LIPITOR [Suspect]
     Route: 048
     Dates: start: 20111001
  3. CELEBREX [Suspect]
     Indication: POLYARTHRITIS
     Route: 065
  4. LEVOXYL [Concomitant]
     Indication: THYROIDECTOMY
     Route: 065
  5. LIPITOR [Suspect]
     Indication: BLOOD CHOLESTEROL INCREASED
     Route: 048
  6. NAPROXEN [Suspect]
     Indication: POLYARTHRITIS
     Route: 065
     Dates: end: 20111201
  7. CELEBREX [Suspect]
     Route: 065
     Dates: start: 20111201

REACTIONS (6)
  - CATARACT [None]
  - VISION BLURRED [None]
  - INTRAOCULAR PRESSURE INCREASED [None]
  - DRUG INEFFECTIVE [None]
  - EYE OEDEMA [None]
  - VISUAL IMPAIRMENT [None]
